FAERS Safety Report 7237191-3 (Version None)
Quarter: 2011Q1

REPORT INFORMATION
  Report Type: 
  Country: None (occurrence: None)
  Receive Date: 20110111
  Receipt Date: 20101227
  Transmission Date: 20110831
  Serious: Yes (Other)
  Sender: FDA-Public Use
  Company Number: 2010005636

PATIENT
  Age: 80 Year
  Sex: Male

DRUGS (1)
  1. TARCEVA [Suspect]
     Indication: LUNG CARCINOMA CELL TYPE UNSPECIFIED STAGE IV
     Dosage: (150 MG,DAILY),ORAL
     Route: 048
     Dates: start: 20101118, end: 20101201

REACTIONS (4)
  - ERYTHEMA [None]
  - DYSAESTHESIA [None]
  - FOLLICULITIS [None]
  - PRURITUS [None]
